FAERS Safety Report 6071758-3 (Version None)
Quarter: 2009Q1

REPORT INFORMATION
  Report Type: 
  Country: None (occurrence: None)
  Receive Date: 20090209
  Receipt Date: 20090209
  Transmission Date: 20090719
  Serious: No
  Sender: FDA-Public Use
  Company Number: None

PATIENT
  Sex: Female
  Weight: 75.2971 kg

DRUGS (3)
  1. NAPROXEN [Suspect]
     Indication: RHEUMATOID ARTHRITIS
     Dates: start: 20070101
  2. PREDNISONE TAB [Suspect]
     Indication: OSTEOPOROSIS
  3. METHOTREXATE [Suspect]
     Indication: ARTHRITIS

REACTIONS (3)
  - INSOMNIA [None]
  - IRRITABILITY [None]
  - RESORPTION BONE INCREASED [None]
